FAERS Safety Report 14666545 (Version 1)
Quarter: 2018Q1

REPORT INFORMATION
  Report Type: Spontaneous
  Country: FR (occurrence: FR)
  Receive Date: 20180321
  Receipt Date: 20180321
  Transmission Date: 20180509
  Serious: Yes (Other)
  Sender: FDA-Public Use
  Company Number: FR-MERCK KGAA-2044247

PATIENT
  Age: 64 Year
  Sex: Female

DRUGS (1)
  1. NOVOTHYROX [Suspect]
     Active Substance: LEVOTHYROXINE SODIUM
     Indication: THYROID CANCER
     Dates: start: 201705

REACTIONS (17)
  - Impaired driving ability [Recovering/Resolving]
  - Weight decreased [Recovered/Resolved]
  - Headache [Recovering/Resolving]
  - Vertigo [Recovered/Resolved]
  - Nausea [Recovering/Resolving]
  - Syncope [Recovering/Resolving]
  - Migraine [Recovering/Resolving]
  - Anxiety [Recovering/Resolving]
  - Alopecia [Recovered/Resolved]
  - Blood thyroid stimulating hormone decreased [Recovered/Resolved]
  - Dizziness [Recovering/Resolving]
  - Nervousness [Recovering/Resolving]
  - Insomnia [Recovering/Resolving]
  - Fatigue [Recovering/Resolving]
  - Hypokinesia [Recovering/Resolving]
  - Visual impairment [Recovering/Resolving]
  - Thyroxine abnormal [Recovered/Resolved]

NARRATIVE: CASE EVENT DATE: 2017
